FAERS Safety Report 5969136-8 (Version None)
Quarter: 2008Q4

REPORT INFORMATION
  Report Type: 
  Country: None (occurrence: None)
  Receive Date: 20081126
  Receipt Date: 20081120
  Transmission Date: 20090506
  Serious: Yes (Other)
  Sender: FDA-Public Use
  Company Number: US-WATSON-2008-06901

PATIENT
  Age: 72 Year
  Sex: Male

DRUGS (4)
  1. AMPICILLIN SODIUM (WATSON LABORATORIES) [Suspect]
     Indication: CHOLANGITIS ACUTE
     Dosage: UNK
     Route: 065
  2. AMPICILLIN SODIUM (WATSON LABORATORIES) [Suspect]
     Indication: CHOLECYSTITIS ACUTE
  3. SULBACTAM [Suspect]
     Indication: CHOLANGITIS ACUTE
     Dosage: UNK
     Route: 065
  4. SULBACTAM [Suspect]
     Indication: CHOLECYSTITIS ACUTE

REACTIONS (1)
  - HEPATITIS CHOLESTATIC [None]
